FAERS Safety Report 21771356 (Version 2)
Quarter: 2022Q4

REPORT INFORMATION
  Report Type: Spontaneous
  Country: RU (occurrence: RU)
  Receive Date: 20221223
  Receipt Date: 20221230
  Transmission Date: 20230112
  Serious: Yes (Other)
  Sender: FDA-Public Use
  Company Number: RU-SUN PHARMACEUTICAL INDUSTRIES LTD-2022R1-370122

PATIENT
  Age: 31 Year
  Sex: Male
  Weight: 100 kg

DRUGS (11)
  1. TESTOSTERONE [Suspect]
     Active Substance: TESTOSTERONE
     Indication: Steroid therapy
     Dosage: 750 UNITS, WEEKLY
     Route: 065
  2. TESTOSTERONE [Suspect]
     Active Substance: TESTOSTERONE
     Indication: Muscle building therapy
     Dosage: 50 UNITS, WEEKLY
     Route: 065
  3. BOLDENONE UNDECYLENATE [Suspect]
     Active Substance: BOLDENONE UNDECYLENATE
     Indication: Muscle building therapy
     Dosage: 500 UNITS, WEEKLY
     Route: 065
  4. DROMOSTANOLONE PROPIONATE [Suspect]
     Active Substance: DROMOSTANOLONE PROPIONATE
     Indication: Muscle building therapy
     Dosage: 50 UNITS, WEEKLY
     Route: 065
  5. FLUOXYMESTERONE [Suspect]
     Active Substance: FLUOXYMESTERONE
     Indication: Muscle building therapy
     Dosage: UNK UNK, DAILY
     Route: 065
  6. METHANDROSTENOLONE [Suspect]
     Active Substance: METHANDROSTENOLONE
     Indication: Muscle building therapy
     Dosage: 50 MG, DAILY
     Route: 065
  7. NANDROLONE DECANOATE [Suspect]
     Active Substance: NANDROLONE DECANOATE
     Indication: Muscle building therapy
     Dosage: 500 UNITS, WEEKLY
     Route: 065
  8. OXYMETHOLONE [Suspect]
     Active Substance: OXYMETHOLONE
     Indication: Muscle building therapy
     Dosage: 100 MG, WEEKLY
     Route: 065
  9. STANOZOLOL [Suspect]
     Active Substance: STANOZOLOL
     Indication: Muscle building therapy
     Dosage: 60 MG, DAILY
     Route: 065
  10. TRENBOLONE ACETATE [Suspect]
     Active Substance: TRENBOLONE ACETATE
     Indication: Muscle building therapy
     Dosage: 400 UNITS, WEEKLY
     Route: 065
  11. TRENBOLONE ENANTHATE [Suspect]
     Active Substance: TRENBOLONE ENANTHATE
     Indication: Muscle building therapy
     Dosage: 500 UNITS, WEEKLY
     Route: 065

REACTIONS (2)
  - Hepatic adenoma [Recovering/Resolving]
  - Renal cell carcinoma [Recovering/Resolving]
